FAERS Safety Report 5678650-4 (Version None)
Quarter: 2008Q1

REPORT INFORMATION
  Report Type: 
  Country: None (occurrence: None)
  Receive Date: 20080325
  Receipt Date: 20080311
  Transmission Date: 20080703
  Serious: Yes (Other)
  Sender: FDA-Public Use
  Company Number: FI-ELI_LILLY_AND_COMPANY-FI200803002399

PATIENT
  Age: 64 Year
  Sex: Female

DRUGS (5)
  1. FORTEO [Suspect]
     Indication: OSTEOPOROSIS
     Dosage: 20 UG, DAILY (1/D)
     Route: 058
     Dates: start: 20070601
  2. TREXAN [Concomitant]
     Indication: MUSCULOSKELETAL PAIN
     Dosage: UNK UNK, DAILY (1/D)
     Dates: start: 19980101
  3. PREDNISOLONE [Concomitant]
     Indication: MUSCULOSKELETAL PAIN
     Dates: start: 19910101
  4. ACETAMINOPHEN [Concomitant]
     Indication: PAIN
  5. FOLIC ACID [Concomitant]
     Dates: start: 19980101

REACTIONS (1)
  - ARRHYTHMIA [None]
